FAERS Safety Report 19314557 (Version 2)
Quarter: 2021Q3

REPORT INFORMATION
  Report Type: Spontaneous
  Country: US (occurrence: US)
  Receive Date: 20210527
  Receipt Date: 20210913
  Transmission Date: 20211014
  Serious: No
  Sender: FDA-Public Use
  Company Number: US-PFIZER INC-2021486268

PATIENT
  Age: 61 Year
  Sex: Female

DRUGS (1)
  1. XELJANZ [Suspect]
     Active Substance: TOFACITINIB CITRATE
     Dosage: 5 MG, 2X/DAY

REACTIONS (6)
  - Abdominal discomfort [Unknown]
  - Headache [Unknown]
  - Pollakiuria [Unknown]
  - Oropharyngeal pain [Unknown]
  - Fatigue [Unknown]
  - Asthenia [Unknown]
